FAERS Safety Report 19471547 (Version 1)
Quarter: 2021Q2

REPORT INFORMATION
  Report Type: Spontaneous
  Country: US (occurrence: US)
  Receive Date: 20210628
  Receipt Date: 20210628
  Transmission Date: 20210717
  Serious: Yes (Death)
  Sender: FDA-Public Use
  Company Number: None

PATIENT
  Age: 70 Year
  Sex: Male

DRUGS (1)
  1. REVLIMID [Suspect]
     Active Substance: LENALIDOMIDE
     Indication: PLASMA CELL MYELOMA
     Route: 048
     Dates: start: 20200129, end: 20210624

REACTIONS (4)
  - Sepsis [None]
  - Plasma cell myeloma [None]
  - End stage renal disease [None]
  - Circulatory collapse [None]

NARRATIVE: CASE EVENT DATE: 20210624
